FAERS Safety Report 8133835-2 (Version None)
Quarter: 2012Q1

REPORT INFORMATION
  Report Type: 
  Country: None (occurrence: None)
  Receive Date: 20120213
  Receipt Date: 20120209
  Transmission Date: 20120608
  Serious: Yes (Death)
  Sender: FDA-Public Use
  Company Number: AU-B.I. PHARMACEUTICALS,INC./RIDGEFIELD-2012-AU-00145AU

PATIENT
  Sex: Male

DRUGS (21)
  1. MODURETIC 5-50 [Concomitant]
     Dosage: 50 MG
     Route: 048
  2. PRADAXA [Suspect]
     Indication: ATRIAL FIBRILLATION
  3. TEMAZEPAM [Concomitant]
     Dosage: 10 MG
     Route: 048
  4. UREX [Concomitant]
     Route: 048
  5. NOROXIN [Concomitant]
     Dosage: 800 MG
     Route: 048
  6. ALDACTONE [Concomitant]
     Route: 048
  7. FERRO-LIQUID [Concomitant]
     Route: 048
  8. VESICARE [Concomitant]
     Dosage: 5 MG
     Route: 048
  9. PRADAXA [Suspect]
     Indication: CEREBROVASCULAR ACCIDENT PROPHYLAXIS
     Dates: start: 20110805
  10. DUROLAX [Concomitant]
     Route: 054
  11. DUATROL [Concomitant]
     Dosage: 1330 MG
     Route: 048
  12. PROCHLORPERAZINE [Concomitant]
     Dosage: 20 MG
     Route: 048
  13. NEXIUM [Concomitant]
     Dosage: 40 MG
     Route: 048
  14. OXYCONTIN [Concomitant]
     Dosage: 20 MG
     Route: 048
  15. ACTILAX [Concomitant]
     Route: 048
  16. CAPADEX [Concomitant]
     Dosage: 1-2 4H PRN
     Route: 048
  17. DIPROSONE [Concomitant]
     Route: 061
  18. DITROPAN [Concomitant]
     Route: 048
  19. MACRODANTIN [Concomitant]
     Route: 048
  20. RULIDE [Concomitant]
     Dosage: 300 MG
     Route: 048
  21. VENTOLIN [Concomitant]
     Route: 055

REACTIONS (1)
  - PNEUMONIA [None]
